FAERS Safety Report 8932691 (Version 1)
Quarter: 2012Q4

REPORT INFORMATION
  Report Type: 
  Country: US (occurrence: US)
  Receive Date: 20121129
  Receipt Date: 20121129
  Transmission Date: 20130627
  Serious: Yes (Other)
  Sender: FDA-Public Use
  Company Number: US-JNJFOC-20121017187

PATIENT
  Sex: Male

DRUGS (3)
  1. PREZISTA [Suspect]
     Indication: HIV INFECTION
     Dosage: for numerous years (reported as greater than 2 years), every 12 hours
     Route: 048
  2. TRUVADA [Suspect]
     Indication: HIV INFECTION
     Dosage: more than 2 years
     Route: 048
  3. NORVIR [Suspect]
     Indication: HIV INFECTION
     Dosage: every 12 hours
     Route: 048

REACTIONS (5)
  - Gastrooesophageal reflux disease [Unknown]
  - Amylase increased [Not Recovered/Not Resolved]
  - Lipase increased [Not Recovered/Not Resolved]
  - Adverse event [Not Recovered/Not Resolved]
  - Abdominal pain upper [Not Recovered/Not Resolved]
